FAERS Safety Report 12077666 (Version 2)
Quarter: 2016Q1

REPORT INFORMATION
  Report Type: Report from Study
  Country: US (occurrence: US)
  Receive Date: 20160215
  Receipt Date: 20160301
  Transmission Date: 20160526
  Serious: Yes (Hospitalization)
  Sender: FDA-Public Use
  Company Number: US-BIOGEN-2016BI00188301

PATIENT
  Age: 60 Year
  Sex: Female

DRUGS (1)
  1. TYSABRI [Suspect]
     Active Substance: NATALIZUMAB
     Indication: MULTIPLE SCLEROSIS
     Route: 042
     Dates: start: 20080530

REACTIONS (7)
  - Hypertension [Recovered/Resolved]
  - Pharyngitis [Recovered/Resolved]
  - Oxygen saturation decreased [Recovered/Resolved]
  - Blood potassium decreased [Recovered/Resolved]
  - Malaise [Recovered/Resolved]
  - Asthenia [Unknown]
  - Headache [Recovered/Resolved]

NARRATIVE: CASE EVENT DATE: 201601
